FAERS Safety Report 6168121-3 (Version None)
Quarter: 2009Q2

REPORT INFORMATION
  Report Type: 
  Country: None (occurrence: None)
  Receive Date: 20090427
  Receipt Date: 20090416
  Transmission Date: 20091009
  Serious: Yes (Other)
  Sender: FDA-Public Use
  Company Number: US-PFIZER INC-2009200389

PATIENT
  Sex: Female
  Weight: 68 kg

DRUGS (6)
  1. PROVERA [Suspect]
     Indication: HORMONE REPLACEMENT THERAPY
     Route: 048
  2. OGEN [Suspect]
     Indication: HORMONE REPLACEMENT THERAPY
     Dosage: 0.625 MG, UNK
     Dates: start: 19660101, end: 19960101
  3. ORTHO-EST [Suspect]
     Indication: HORMONE REPLACEMENT THERAPY
     Dosage: 0.625 MG, UNK
  4. ESTROPIPATE [Suspect]
     Indication: HORMONE REPLACEMENT THERAPY
  5. ESTRATEST [Suspect]
     Indication: HORMONE REPLACEMENT THERAPY
     Dosage: 0.625 MG, UNK
  6. GLUCOTROL XL [Concomitant]
     Indication: DIABETES MELLITUS
     Dosage: UNK
     Dates: start: 19970101

REACTIONS (1)
  - OVARIAN CANCER [None]
